FAERS Safety Report 16655263 (Version 1)
Quarter: 2019Q3

REPORT INFORMATION
  Report Type: Spontaneous
  Country: FR (occurrence: FR)
  Receive Date: 20190801
  Receipt Date: 20190801
  Transmission Date: 20191004
  Serious: Yes (Hospitalization)
  Sender: FDA-Public Use
  Company Number: FR-TEVA-2019-FR-1086278

PATIENT
  Age: 82 Year
  Sex: Male
  Weight: 95 kg

DRUGS (8)
  1. IMATINIB BASE [Suspect]
     Active Substance: IMATINIB
     Indication: CHRONIC MYELOID LEUKAEMIA
     Dosage: 400 MG/ DAY
     Route: 048
     Dates: start: 20181114
  2. AMIODARONE [Concomitant]
     Active Substance: AMIODARONE
  3. BISOCE [Concomitant]
     Active Substance: BISOPROLOL
  4. COUMADINE [Concomitant]
     Active Substance: WARFARIN SODIUM
  5. TAHOR [Concomitant]
     Active Substance: ATORVASTATIN CALCIUM
  6. HUMALOG [Concomitant]
     Active Substance: INSULIN LISPRO
  7. DUOPLAVIN [Concomitant]
     Active Substance: ASPIRIN\CLOPIDOGREL
  8. FUROSEMIDE. [Concomitant]
     Active Substance: FUROSEMIDE

REACTIONS (1)
  - Gastrointestinal angiodysplasia [Recovering/Resolving]

NARRATIVE: CASE EVENT DATE: 20190502
